FAERS Safety Report 6260538-1 (Version None)
Quarter: 2009Q2

REPORT INFORMATION
  Report Type: 
  Country: None (occurrence: None)
  Receive Date: 20090615
  Receipt Date: 20090603
  Transmission Date: 20091009
  Serious: Yes (Disabling)
  Sender: FDA-Public Use
  Company Number: THYM-1001043

PATIENT
  Age: 48 Year
  Sex: Female
  Weight: 38 kg

DRUGS (22)
  1. THYMOGLOBULIN [Suspect]
     Indication: APLASTIC ANAEMIA
     Dosage: 2.5 MG/KG, QD, INTRAVENOUS
     Route: 042
     Dates: start: 20090311, end: 20090314
  2. LANSOPRAZOLE [Concomitant]
  3. ACYCLOVIR [Concomitant]
  4. NIFEDIPINE [Concomitant]
  5. PREDNISOLONE [Concomitant]
  6. CYCLOSPORINE [Concomitant]
  7. POTASSIUM CHLORIDE [Concomitant]
  8. METOCLOPRAMIDE [Concomitant]
  9. ACETAMINOPHEN [Concomitant]
  10. HEPARINOID (HEPARINOID) [Concomitant]
  11. MICAFUNGIN SODIUM (MICAFUNGIN SODIUM) [Concomitant]
  12. CEFEPRIME DIHYDROCHLORIDE (CEFEPIME DIHYDROCHLORIDE) [Concomitant]
  13. VANCOMYCIN HYDROCHLORIDE [Concomitant]
  14. HYDROCORTISONE SODIUM SUCCINATE [Concomitant]
  15. AMINO ACID/CARBOHYDRATE/ELECTROLYTE/VITAMIN (AMINO ACID/CARBOGHYDRATE/ [Concomitant]
  16. MANGANESE CHLORIDE/ZINC SULFATE (MANGANESE CHLORIDE/ZINC SULFATE) [Concomitant]
  17. MAGNESIUM SULFATE [Concomitant]
  18. GANCICILOVIR (GANCICLOVIR) [Concomitant]
  19. PENTAZOCINE LACTATE [Concomitant]
  20. PROCHLORPERAZINE MALEATE [Concomitant]
  21. CYCLOPHOSPHAMIDE [Concomitant]
  22. FLUDARABINE PHOSPHATE (FLUDARABINE PHOSPATE) [Concomitant]

REACTIONS (2)
  - MENTAL DISORDER [None]
  - VISUAL IMPAIRMENT [None]
